FAERS Safety Report 4746205-1 (Version None)
Quarter: 2005Q3

REPORT INFORMATION
  Report Type: 
  Country: None (occurrence: None)
  Receive Date: 20050816
  Receipt Date: 20050517
  Transmission Date: 20060218
  Serious: Yes (Hospitalization, Disabling)
  Sender: FDA-Public Use
  Company Number: US-MERCK-0505USA02127

PATIENT
  Age: 42 Year
  Sex: Male
  Weight: 91 kg

DRUGS (6)
  1. VIOXX [Suspect]
     Indication: OSTEOARTHRITIS
     Route: 048
     Dates: start: 19990919, end: 20040930
  2. LORTAB [Concomitant]
     Route: 065
  3. XANAX [Concomitant]
     Route: 065
     Dates: start: 20010101
  4. ZOLOFT [Concomitant]
     Route: 065
     Dates: start: 20010101
  5. NORVASC [Concomitant]
     Route: 065
     Dates: start: 20000101, end: 20020101
  6. ALTACE [Concomitant]
     Route: 065
     Dates: start: 20000101, end: 20020101

REACTIONS (7)
  - ACUTE MYOCARDIAL INFARCTION [None]
  - ANXIETY [None]
  - BLOOD CHOLESTEROL INCREASED [None]
  - BLOOD TRIGLYCERIDES INCREASED [None]
  - DEPRESSION [None]
  - HYPERTENSION [None]
  - SEXUAL DYSFUNCTION [None]
